FAERS Safety Report 5608639-2 (Version None)
Quarter: 2008Q1

REPORT INFORMATION
  Report Type: 
  Country: None (occurrence: None)
  Receive Date: 20080130
  Receipt Date: 20080124
  Transmission Date: 20080703
  Serious: Yes (Death)
  Sender: FDA-Public Use
  Company Number: US-PFIZER INC-2007095093

PATIENT
  Sex: Female

DRUGS (7)
  1. REVATIO [Suspect]
     Indication: PULMONARY HYPERTENSION
  2. MICARDIS [Concomitant]
  3. SINEMET [Concomitant]
  4. COUMADIN [Concomitant]
  5. INSULIN [Concomitant]
  6. METOPROLOL TARTRATE [Concomitant]
  7. SYNTHROID [Concomitant]

REACTIONS (1)
  - CARDIAC FAILURE CONGESTIVE [None]
